FAERS Safety Report 8465672-3 (Version None)
Quarter: 2012Q2

REPORT INFORMATION
  Report Type: 
  Country: None (occurrence: None)
  Receive Date: 20120626
  Receipt Date: 20120619
  Transmission Date: 20120825
  Serious: Yes (Life-Threatening, Hospitalization, Other)
  Sender: FDA-Public Use
  Company Number: IL-B.I. PHARMACEUTICALS,INC./RIDGEFIELD-2012-AP-00511RI

PATIENT
  Age: 82 Year
  Sex: Male
  Weight: 98 kg

DRUGS (6)
  1. PRADAXA [Suspect]
     Dosage: 220 MG
     Route: 048
  2. MULTAQ [Concomitant]
     Dosage: 800 MG
     Route: 048
  3. ATACAND [Concomitant]
     Dosage: 16 MG
     Route: 048
     Dates: start: 20120401
  4. OMNIC OCAS [Concomitant]
     Route: 048
     Dates: start: 20120401
  5. OMEPRAZOLE [Concomitant]
     Dosage: 20 MG
     Route: 048
     Dates: start: 20070801
  6. NORVASC [Concomitant]
     Dosage: 10 MG
     Route: 048

REACTIONS (4)
  - NEOPLASM MALIGNANT [None]
  - PLATELET COUNT ABNORMAL [None]
  - GINGIVAL BLEEDING [None]
  - HAEMOGLOBIN DECREASED [None]
